FAERS Safety Report 4998412-0 (Version None)
Quarter: 2006Q2

REPORT INFORMATION
  Report Type: 
  Country: None (occurrence: None)
  Receive Date: 20060510
  Receipt Date: 20050325
  Transmission Date: 20061013
  Serious: Yes (Death)
  Sender: FDA-Public Use
  Company Number: US-GLAXOSMITHKLINE-A0551980A

PATIENT
  Age: 33 Year
  Sex: Male
  Weight: 120 kg

DRUGS (2)
  1. PAXIL [Suspect]
     Indication: ANXIETY
     Dosage: 20MG PER DAY
     Route: 048
     Dates: start: 20020403
  2. AMBIEN [Concomitant]

REACTIONS (8)
  - AGITATION [None]
  - AKATHISIA [None]
  - COMPLETED SUICIDE [None]
  - CONFUSIONAL STATE [None]
  - IMPATIENCE [None]
  - INSOMNIA [None]
  - RESTLESSNESS [None]
  - STRESS [None]
